FAERS Safety Report 8345638-4 (Version None)
Quarter: 2012Q2

REPORT INFORMATION
  Report Type: 
  Country: None (occurrence: None)
  Receive Date: 20120508
  Receipt Date: 20120502
  Transmission Date: 20120825
  Serious: Yes (Hospitalization)
  Sender: FDA-Public Use
  Company Number: US-MERCK-1205USA00655

PATIENT
  Age: 50 Year
  Sex: Female

DRUGS (5)
  1. PRAVASTATIN SODIUM [Concomitant]
     Route: 065
  2. NEXIUM [Concomitant]
     Route: 065
  3. SYNTHROID [Concomitant]
     Route: 065
  4. SINGULAIR [Suspect]
     Route: 048
     Dates: start: 20120301, end: 20120430
  5. DIOVAN [Concomitant]
     Route: 065

REACTIONS (2)
  - CHEST PAIN [None]
  - CARDIAC DISORDER [None]
